FAERS Safety Report 5735864-2 (Version None)
Quarter: 2008Q2

REPORT INFORMATION
  Report Type: 
  Country: None (occurrence: None)
  Receive Date: 20080513
  Receipt Date: 20080505
  Transmission Date: 20081010
  Serious: Yes (Life-Threatening, Hospitalization, Other)
  Sender: FDA-Public Use
  Company Number: US-ELI_LILLY_AND_COMPANY-US200804006181

PATIENT
  Sex: Female
  Weight: 107 kg

DRUGS (6)
  1. ALIMTA [Suspect]
     Indication: NON-SMALL CELL LUNG CANCER
     Dosage: 500 MG/M2, UNK
     Dates: start: 20080417
  2. CISPLATIN [Concomitant]
     Indication: NON-SMALL CELL LUNG CANCER
     Dosage: 75 MG/M2, Q 3 WEEKS
     Dates: start: 20080417
  3. VITAMIN B-12 [Concomitant]
     Indication: SUPPLEMENTATION THERAPY
     Dosage: 1000 UG, UNK
     Dates: start: 20080410
  4. DEXAMETHASONE [Concomitant]
     Indication: SUPPLEMENTATION THERAPY
     Dosage: 4 MG, 2/D
     Dates: start: 20080416, end: 20080418
  5. DEXAMETHASONE [Concomitant]
     Dosage: 4 MG, DAILY (1/D)
     Route: 048
     Dates: start: 20080421
  6. FOLIC ACID [Concomitant]
     Indication: SUPPLEMENTATION THERAPY
     Dosage: 1000 UG, DAILY (1/D)
     Dates: start: 20080414

REACTIONS (3)
  - EMBOLIC CEREBRAL INFARCTION [None]
  - INCONTINENCE [None]
  - THROMBOSIS [None]
